FAERS Safety Report 6487683-X (Version None)
Quarter: 2009Q4

REPORT INFORMATION
  Report Type: 
  Country: None (occurrence: None)
  Receive Date: 20091210
  Receipt Date: 20091203
  Transmission Date: 20100525
  Serious: Yes (Hospitalization)
  Sender: FDA-Public Use
  Company Number: DE-BAXTER-2009BH018791

PATIENT
  Age: 55 Year
  Sex: Female
  Weight: 75 kg

DRUGS (9)
  1. IFOSFAMIDE [Suspect]
     Indication: GASTRIC SARCOMA
     Route: 042
     Dates: start: 20090915, end: 20090919
  2. PIPERACILLIN AND TAZOBACTAM [Suspect]
     Indication: PNEUMONIA
     Route: 042
     Dates: start: 20090925, end: 20091004
  3. PANTOPRAZOLE [Interacting]
     Indication: PROPHYLAXIS AGAINST GASTROINTESTINAL ULCER
     Route: 048
     Dates: start: 20090601
  4. DIFLUCAN [Interacting]
     Indication: PROPHYLAXIS
     Route: 048
     Dates: start: 20090925, end: 20091002
  5. DEXAMETHASONE TAB [Interacting]
     Indication: GASTRIC SARCOMA
     Route: 042
     Dates: start: 20090915, end: 20090919
  6. METOPROLOL [Concomitant]
     Indication: HYPERTENSION
     Dosage: 95MG/0/47.5 MG
     Route: 048
     Dates: start: 20000101
  7. CIPRALEX [Concomitant]
     Indication: ANXIETY DISORDER
     Route: 048
     Dates: start: 20090918
  8. GRANISETRON HCL [Concomitant]
     Indication: PROPHYLAXIS OF NAUSEA AND VOMITING
     Route: 042
     Dates: start: 20090915, end: 20090919
  9. MESNA [Concomitant]
     Indication: PROPHYLAXIS
     Route: 042
     Dates: start: 20090915, end: 20090919

REACTIONS (1)
  - CLOSTRIDIUM DIFFICILE COLITIS [None]
